FAERS Safety Report 7380644-8 (Version None)
Quarter: 2011Q1

REPORT INFORMATION
  Report Type: 
  Country: None (occurrence: None)
  Receive Date: 20110329
  Receipt Date: 20110328
  Transmission Date: 20110831
  Serious: Yes (Other)
  Sender: FDA-Public Use
  Company Number: A0911894A

PATIENT
  Age: 75 Year
  Sex: Male

DRUGS (1)
  1. ALLI [Suspect]
     Indication: BLOOD CHOLESTEROL INCREASED
     Route: 048

REACTIONS (6)
  - HEPATIC ENZYME INCREASED [None]
  - CONDITION AGGRAVATED [None]
  - DRUG ADMINISTRATION ERROR [None]
  - FAECAL INCONTINENCE [None]
  - HEPATIC STEATOSIS [None]
  - TREATMENT NONCOMPLIANCE [None]
